FAERS Safety Report 9238183 (Version 2)
Quarter: 2013Q2

REPORT INFORMATION
  Report Type: Spontaneous
  Country: US (occurrence: None)
  Receive Date: 20130415
  Receipt Date: 20130617
  Transmission Date: 20140414
  Serious: Yes (Other)
  Sender: FDA-Public Use
  Company Number: ACO_35378_2013

PATIENT
  Age: 79 Year
  Sex: Female
  Weight: 54.4 kg

DRUGS (8)
  1. AMPYRA [Suspect]
     Indication: GAIT DISTURBANCE
     Dates: start: 201010
  2. COPAXONE (GLATIRAMER ACETATE) [Concomitant]
  3. VESICARE (SOLIFENACIN SUCCINATE) [Concomitant]
  4. PRILOSEC (OMEPRAZOLE MAGNESIUM) [Concomitant]
  5. VITAMIN D (ERGOCALCIFEROL) [Concomitant]
  6. CALCIUM +D (CALCIUM CARBONATE, COLECALCIFEROL) [Concomitant]
  7. RECLAST (ZOLEDRONIC ACID) [Concomitant]
  8. ALL OTHER THERAPEUTIC PRODUCTS [Concomitant]

REACTIONS (4)
  - Cataract [None]
  - Osteoporosis [None]
  - Osteopenia [None]
  - Condition aggravated [None]
